FAERS Safety Report 22345750 (Version 2)
Quarter: 2023Q2

REPORT INFORMATION
  Report Type: Report from Study
  Country: US (occurrence: US)
  Receive Date: 20230519
  Receipt Date: 20230525
  Transmission Date: 20230722
  Serious: Yes (Other)
  Sender: FDA-Public Use
  Company Number: US-002147023-NVSC2023US110765

PATIENT
  Sex: Male
  Weight: 104.33 kg

DRUGS (6)
  1. COSENTYX [Suspect]
     Active Substance: SECUKINUMAB
     Indication: Psoriasis
     Dosage: UNK STOPPED IN AUG (UNKNOWN YEAR)
     Route: 065
  2. COSENTYX [Suspect]
     Active Substance: SECUKINUMAB
     Indication: Psoriatic arthropathy
  3. MELOXICAM [Suspect]
     Active Substance: MELOXICAM
     Indication: Psoriasis
     Dosage: UNK
     Route: 065
  4. MELOXICAM [Suspect]
     Active Substance: MELOXICAM
     Indication: Psoriatic arthropathy
  5. CHOLECALCIFEROL [Suspect]
     Active Substance: CHOLECALCIFEROL
     Indication: Psoriasis
     Dosage: UNK
     Route: 065
  6. CHOLECALCIFEROL [Suspect]
     Active Substance: CHOLECALCIFEROL
     Indication: Psoriatic arthropathy

REACTIONS (10)
  - Psoriatic arthropathy [Unknown]
  - Psoriasis [Unknown]
  - Musculoskeletal stiffness [Not Recovered/Not Resolved]
  - Acne [Unknown]
  - Arthralgia [Unknown]
  - Tenderness [Not Recovered/Not Resolved]
  - Peripheral swelling [Unknown]
  - Palpitations [Unknown]
  - Product use in unapproved indication [Unknown]
  - Drug ineffective [Unknown]
